FAERS Safety Report 19909706 (Version 1)
Quarter: 2021Q4

REPORT INFORMATION
  Report Type: Report from Study
  Country: FR (occurrence: FR)
  Receive Date: 20211002
  Receipt Date: 20211002
  Transmission Date: 20220303
  Serious: Yes (Hospitalization)
  Sender: FDA-Public Use
  Company Number: FR-SERVIER-S20004547

PATIENT

DRUGS (8)
  1. PEGASPARGASE [Suspect]
     Active Substance: PEGASPARGASE
     Indication: Acute lymphocytic leukaemia
     Dosage: 3150 IU, D12 AND D26
     Route: 042
     Dates: start: 20191016
  2. CYCLOPHOSPHAMIDE [Suspect]
     Active Substance: CYCLOPHOSPHAMIDE
     Indication: Acute lymphocytic leukaemia
     Dosage: 1250 MG, ON D 9
     Route: 042
     Dates: start: 20191013, end: 20191013
  3. VINCRISTINE [Suspect]
     Active Substance: VINCRISTINE
     Indication: Acute lymphocytic leukaemia
     Dosage: 7.9 MG, ON D8, D15,D22,D29
     Route: 042
     Dates: start: 20191012, end: 20191103
  4. DAUNORUBICIN [Suspect]
     Active Substance: DAUNORUBICIN
     Indication: Acute lymphocytic leukaemia
     Dosage: 30 MG, D8,D15,D10,D19
     Route: 042
     Dates: start: 20191019, end: 20191102
  5. METHYLPREDNISOLONE [Suspect]
     Active Substance: METHYLPREDNISOLONE
     Indication: Acute lymphocytic leukaemia
     Dosage: 75 MG, D1 TO D28
     Route: 048
     Dates: start: 20191011, end: 20191102
  6. TN UNSPECIFIED [Concomitant]
     Indication: Acute lymphocytic leukaemia
     Dosage: 15 MG,ON D1,D4,D9, D13 AND D 24
     Route: 037
     Dates: start: 20191015, end: 20191029
  7. TN UNSPECIFIED [Concomitant]
     Indication: Acute lymphocytic leukaemia
     Dosage: 30 MG ON D4,D9, D13 AND D 24
     Route: 037
     Dates: start: 20191018, end: 20191029
  8. TN UNSPECIFIED [Concomitant]
     Indication: Acute lymphocytic leukaemia
     Dosage: 15 MG, ON D4, D9,D13 AND D24
     Route: 037
     Dates: start: 20191018, end: 20191029

REACTIONS (1)
  - Klebsiella sepsis [Recovered/Resolved with Sequelae]

NARRATIVE: CASE EVENT DATE: 20191104
